APPROVED DRUG PRODUCT: NEPTAZANE
Active Ingredient: METHAZOLAMIDE
Strength: 50MG **Federal Register determination that product was not discontinued or withdrawn for safety or effectiveness reasons**
Dosage Form/Route: TABLET;ORAL
Application: N011721 | Product #001
Applicant: LEDERLE LABORATORIES DIV AMERICAN CYANAMID CO
Approved: Approved Prior to Jan 1, 1982 | RLD: Yes | RS: No | Type: DISCN